FAERS Safety Report 4356248-8 (Version None)
Quarter: 2004Q2

REPORT INFORMATION
  Report Type: 
  Country: None (occurrence: None)
  Receive Date: 20040511
  Receipt Date: 20040426
  Transmission Date: 20050107
  Serious: Yes (Other)
  Sender: FDA-Public Use
  Company Number: SE-SHR-03-012168

PATIENT
  Age: 38 Year
  Sex: Female

DRUGS (2)
  1. LEVONORGESTREL [Suspect]
     Indication: CONTRACEPTION
     Dosage: 20 UG/DAY, CONT, INTRA-UTERINE
     Route: 015
     Dates: start: 20021001
  2. ROACUTAN (ISOTRETINOIN) CAPSULE [Suspect]
     Indication: ACNE CYSTIC
     Dosage: 20 MG 2X/DAY, ORAL
     Route: 048
     Dates: start: 20021011, end: 20030321

REACTIONS (1)
  - ILIAC VEIN THROMBOSIS [None]
